FAERS Safety Report 4352323-2 (Version None)
Quarter: 2004Q2

REPORT INFORMATION
  Report Type: 
  Country: None (occurrence: None)
  Receive Date: 20040415
  Receipt Date: 20030318
  Transmission Date: 20050107
  Serious: No
  Sender: FDA-Public Use
  Company Number: 2003UW03609

PATIENT
  Age: 62 Year
  Sex: Male
  Weight: 79.3795 kg

DRUGS (1)
  1. TENORMIN [Suspect]
     Dosage: 25 MG PO
     Route: 048
     Dates: start: 19990901

REACTIONS (2)
  - DEPRESSION [None]
  - PSYCHOTIC DISORDER [None]
